FAERS Safety Report 9400370 (Version 1)
Quarter: 2013Q3

REPORT INFORMATION
  Report Type: Spontaneous
  Country: US (occurrence: None)
  Receive Date: 20130712
  Receipt Date: 20130712
  Transmission Date: 20140515
  Serious: Yes (Other)
  Sender: FDA-Public Use
  Company Number: None

PATIENT
  Age: 62 Year
  Sex: Female
  Weight: 54.43 kg

DRUGS (10)
  1. IBANDRONATE SODIUM [Suspect]
     Indication: OSTEOPENIA
     Dosage: 1 PLL PER PKG MONTHLY MOUTH
     Route: 048
  2. POLYETHYLENE GLYCOL [Concomitant]
  3. ESCITALOPRAM OXALATE [Concomitant]
  4. VALCYCLOVIR [Concomitant]
  5. DEXILANT [Concomitant]
  6. LEVOTHYROXINE [Concomitant]
  7. VIT D [Concomitant]
  8. STRESS TABS [Concomitant]
  9. ESTER-C [Concomitant]
  10. L-LYSINE [Concomitant]

REACTIONS (3)
  - Constipation [None]
  - Arthritis [None]
  - Diarrhoea [None]
